FAERS Safety Report 4866025-7 (Version None)
Quarter: 2005Q4

REPORT INFORMATION
  Report Type: 
  Country: None (occurrence: None)
  Receive Date: 20051221
  Receipt Date: 20051208
  Transmission Date: 20060501
  Serious: Yes (Hospitalization)
  Sender: FDA-Public Use
  Company Number: 8013630

PATIENT
  Age: 70 Year
  Sex: Female

DRUGS (7)
  1. THEOPHYLLINE [Suspect]
     Indication: ASTHMA
     Dosage: 400 MG PO
     Route: 048
  2. THEOPHYLLINE [Suspect]
     Indication: ASTHMA
     Dosage: PO
     Route: 048
  3. FUROSEMIDE [Suspect]
  4. SPIRONOLACTONE [Suspect]
  5. AMIODARONE [Suspect]
  6. OMEPRAZOLE [Suspect]
  7. LANSOPRAZOLE [Suspect]

REACTIONS (15)
  - ATRIAL FIBRILLATION [None]
  - CARDIAC FAILURE [None]
  - CONDITION AGGRAVATED [None]
  - DECREASED APPETITE [None]
  - DRUG INTERACTION [None]
  - DRUG LEVEL INCREASED [None]
  - DRUG TOXICITY [None]
  - DYSPHAGIA [None]
  - GASTROINTESTINAL HAEMORRHAGE [None]
  - HAEMATEMESIS [None]
  - PNEUMONIA [None]
  - POST PROCEDURAL COMPLICATION [None]
  - RESPIRATORY FAILURE [None]
  - SMALL INTESTINAL HAEMORRHAGE [None]
  - VOMITING [None]
